FAERS Safety Report 14895306 (Version 2)
Quarter: 2018Q2

REPORT INFORMATION
  Report Type: Spontaneous
  Country: US (occurrence: US)
  Receive Date: 20180515
  Receipt Date: 20180528
  Transmission Date: 20180711
  Serious: No
  Sender: FDA-Public Use
  Company Number: US-ASTRAZENECA-2018SE63483

PATIENT
  Age: 24 Year
  Sex: Male

DRUGS (37)
  1. SEROQUEL [Suspect]
     Active Substance: QUETIAPINE FUMARATE
     Indication: AFFECTIVE DISORDER
     Dosage: 200.0MG UNKNOWN
     Route: 048
     Dates: start: 20180511
  2. SEROQUEL [Suspect]
     Active Substance: QUETIAPINE FUMARATE
     Indication: AUTISM SPECTRUM DISORDER
     Dosage: 100.0MG UNKNOWN
     Route: 048
     Dates: start: 20180511
  3. SEROQUEL [Suspect]
     Active Substance: QUETIAPINE FUMARATE
     Indication: AFFECTIVE DISORDER
     Dosage: 100.0MG UNKNOWN
     Route: 048
     Dates: start: 20180511
  4. SEROQUEL [Suspect]
     Active Substance: QUETIAPINE FUMARATE
     Indication: LEARNING DISABILITY
     Dosage: 200.0MG UNKNOWN
     Route: 048
     Dates: start: 2012, end: 20180206
  5. SEROQUEL [Suspect]
     Active Substance: QUETIAPINE FUMARATE
     Indication: AUTISM SPECTRUM DISORDER
     Dosage: 400.0MG UNKNOWN
     Route: 048
  6. SEROQUEL [Suspect]
     Active Substance: QUETIAPINE FUMARATE
     Indication: AFFECTIVE DISORDER
     Dosage: 100.0MG UNKNOWN
     Route: 048
  7. SEROQUEL [Suspect]
     Active Substance: QUETIAPINE FUMARATE
     Indication: AUTISM SPECTRUM DISORDER
     Dosage: 450.0MG UNKNOWN
     Route: 048
     Dates: start: 20180208
  8. SEROQUEL [Suspect]
     Active Substance: QUETIAPINE FUMARATE
     Indication: LEARNING DISABILITY
     Dosage: 450.0MG UNKNOWN
     Route: 048
     Dates: start: 20180208
  9. SEROQUEL [Suspect]
     Active Substance: QUETIAPINE FUMARATE
     Indication: LEARNING DISABILITY
     Dosage: 400.0MG UNKNOWN
     Route: 048
  10. SEROQUEL [Suspect]
     Active Substance: QUETIAPINE FUMARATE
     Indication: AFFECTIVE DISORDER
     Dosage: 400.0MG UNKNOWN
     Route: 048
  11. SEROQUEL [Suspect]
     Active Substance: QUETIAPINE FUMARATE
     Indication: AUTISM SPECTRUM DISORDER
     Dosage: 100.0MG UNKNOWN
     Route: 048
     Dates: end: 20180511
  12. SEROQUEL [Suspect]
     Active Substance: QUETIAPINE FUMARATE
     Indication: LEARNING DISABILITY
     Dosage: 100.0MG UNKNOWN
     Route: 048
     Dates: end: 20180511
  13. SEROQUEL [Suspect]
     Active Substance: QUETIAPINE FUMARATE
     Indication: AUTISM SPECTRUM DISORDER
     Dosage: 200.0MG UNKNOWN
     Route: 048
     Dates: start: 20180511
  14. SEROQUEL [Suspect]
     Active Substance: QUETIAPINE FUMARATE
     Indication: PSYCHOMOTOR HYPERACTIVITY
     Dosage: 200.0MG UNKNOWN
     Route: 048
     Dates: start: 20180511
  15. SEROQUEL [Suspect]
     Active Substance: QUETIAPINE FUMARATE
     Indication: AUTISM SPECTRUM DISORDER
     Dosage: 100.0MG UNKNOWN
     Route: 048
  16. SEROQUEL [Suspect]
     Active Substance: QUETIAPINE FUMARATE
     Indication: LEARNING DISABILITY
     Dosage: 100.0MG UNKNOWN
     Route: 048
  17. SEROQUEL [Suspect]
     Active Substance: QUETIAPINE FUMARATE
     Indication: AUTISM SPECTRUM DISORDER
     Dosage: 100.0MG UNKNOWN
     Route: 048
     Dates: start: 2012, end: 20180206
  18. SEROQUEL [Suspect]
     Active Substance: QUETIAPINE FUMARATE
     Indication: AFFECTIVE DISORDER
     Dosage: 450.0MG UNKNOWN
     Route: 048
     Dates: start: 20180208
  19. SEROQUEL [Suspect]
     Active Substance: QUETIAPINE FUMARATE
     Indication: LEARNING DISABILITY
     Dosage: 200.0MG UNKNOWN
     Route: 048
     Dates: start: 20180511
  20. SEROQUEL [Suspect]
     Active Substance: QUETIAPINE FUMARATE
     Indication: LEARNING DISABILITY
     Dosage: 100.0MG UNKNOWN
     Route: 048
     Dates: start: 20180511
  21. SEROQUEL [Suspect]
     Active Substance: QUETIAPINE FUMARATE
     Indication: PSYCHOMOTOR HYPERACTIVITY
     Dosage: 100.0MG UNKNOWN
     Route: 048
     Dates: start: 2012, end: 20180206
  22. SEROQUEL [Suspect]
     Active Substance: QUETIAPINE FUMARATE
     Indication: AFFECTIVE DISORDER
     Dosage: 100.0MG UNKNOWN
     Route: 048
     Dates: start: 2012, end: 20180206
  23. SEROQUEL [Suspect]
     Active Substance: QUETIAPINE FUMARATE
     Indication: AFFECTIVE DISORDER
     Dosage: 100.0MG UNKNOWN
     Route: 048
     Dates: end: 20180511
  24. SEROQUEL [Suspect]
     Active Substance: QUETIAPINE FUMARATE
     Indication: PSYCHOMOTOR HYPERACTIVITY
     Dosage: 100.0MG UNKNOWN
     Route: 048
     Dates: start: 20180511
  25. SEROQUEL [Suspect]
     Active Substance: QUETIAPINE FUMARATE
     Indication: AUTISM SPECTRUM DISORDER
     Dosage: 200MG IN AM, 100MG AT NOON, AND 200MG IN PM
     Route: 048
     Dates: start: 2005
  26. SEROQUEL [Suspect]
     Active Substance: QUETIAPINE FUMARATE
     Indication: AFFECTIVE DISORDER
     Dosage: 200.0MG UNKNOWN
     Route: 048
     Dates: start: 2012, end: 20180206
  27. SEROQUEL [Suspect]
     Active Substance: QUETIAPINE FUMARATE
     Indication: PSYCHOMOTOR HYPERACTIVITY
     Dosage: 400.0MG UNKNOWN
     Route: 048
  28. SEROQUEL [Suspect]
     Active Substance: QUETIAPINE FUMARATE
     Indication: PSYCHOMOTOR HYPERACTIVITY
     Dosage: 100.0MG UNKNOWN
     Route: 048
     Dates: end: 20180511
  29. SEROQUEL [Suspect]
     Active Substance: QUETIAPINE FUMARATE
     Indication: PSYCHOMOTOR HYPERACTIVITY
     Dosage: 200MG IN AM, 100MG AT NOON, AND 200MG IN PM
     Route: 048
     Dates: start: 2005
  30. SEROQUEL [Suspect]
     Active Substance: QUETIAPINE FUMARATE
     Indication: AFFECTIVE DISORDER
     Dosage: 200MG IN AM, 100MG AT NOON, AND 200MG IN PM
     Route: 048
     Dates: start: 2005
  31. SEROQUEL [Suspect]
     Active Substance: QUETIAPINE FUMARATE
     Indication: LEARNING DISABILITY
     Dosage: 100.0MG UNKNOWN
     Route: 048
     Dates: start: 2012, end: 20180206
  32. SEROQUEL [Suspect]
     Active Substance: QUETIAPINE FUMARATE
     Indication: PSYCHOMOTOR HYPERACTIVITY
     Dosage: 450.0MG UNKNOWN
     Route: 048
     Dates: start: 20180208
  33. ZOLOFT [Concomitant]
     Active Substance: SERTRALINE HYDROCHLORIDE
     Indication: ANXIETY
     Route: 048
     Dates: start: 2016
  34. SEROQUEL [Suspect]
     Active Substance: QUETIAPINE FUMARATE
     Indication: LEARNING DISABILITY
     Dosage: 200MG IN AM, 100MG AT NOON, AND 200MG IN PM
     Route: 048
     Dates: start: 2005
  35. SEROQUEL [Suspect]
     Active Substance: QUETIAPINE FUMARATE
     Indication: PSYCHOMOTOR HYPERACTIVITY
     Dosage: 100.0MG UNKNOWN
     Route: 048
  36. SEROQUEL [Suspect]
     Active Substance: QUETIAPINE FUMARATE
     Indication: AUTISM SPECTRUM DISORDER
     Dosage: 200.0MG UNKNOWN
     Route: 048
     Dates: start: 2012, end: 20180206
  37. SEROQUEL [Suspect]
     Active Substance: QUETIAPINE FUMARATE
     Indication: PSYCHOMOTOR HYPERACTIVITY
     Dosage: 200.0MG UNKNOWN
     Route: 048
     Dates: start: 2012, end: 20180206

REACTIONS (4)
  - Product use in unapproved indication [Not Recovered/Not Resolved]
  - Off label use [Not Recovered/Not Resolved]
  - Cataract [Not Recovered/Not Resolved]
  - Off label use [Not Recovered/Not Resolved]

NARRATIVE: CASE EVENT DATE: 2012
